FAERS Safety Report 4284126-1 (Version None)
Quarter: 2004Q1

REPORT INFORMATION
  Report Type: 
  Country: None (occurrence: None)
  Receive Date: 20040203
  Receipt Date: 20040122
  Transmission Date: 20041129
  Serious: Yes (Hospitalization)
  Sender: FDA-Public Use
  Company Number: FR-BRISTOL-MYERS SQUIBB COMPANY-12484721

PATIENT
  Age: 2 Month
  Sex: Male

DRUGS (2)
  1. MUCOMYST [Suspect]
     Indication: COUGH
     Route: 048
  2. OCTOFENE [Concomitant]

REACTIONS (3)
  - BRONCHIOLITIS [None]
  - DYSPNOEA [None]
  - HEPATIC FUNCTION ABNORMAL [None]
